FAERS Safety Report 21387443 (Version 1)
Quarter: 2022Q3

REPORT INFORMATION
  Report Type: Spontaneous
  Country: US (occurrence: US)
  Receive Date: 20220928
  Receipt Date: 20220928
  Transmission Date: 20221027
  Serious: No
  Sender: FDA-Public Use
  Company Number: US-MYLANLABS-2022M1095914

PATIENT
  Sex: Female
  Weight: 90.72 kg

DRUGS (1)
  1. XULANE [Suspect]
     Active Substance: ETHINYL ESTRADIOL\NORELGESTROMIN
     Indication: Pain
     Dosage: 150/35 MICROGRAM, QD (ONCE WEEKLY)
     Route: 062

REACTIONS (2)
  - Off label use [Unknown]
  - Product adhesion issue [Unknown]
